FAERS Safety Report 19650517 (Version 1)
Quarter: 2021Q3

REPORT INFORMATION
  Report Type: Report from Study
  Country: US (occurrence: US)
  Receive Date: 20210802
  Receipt Date: 20210802
  Transmission Date: 20211014
  Serious: Yes (Death)
  Sender: FDA-Public Use
  Company Number: US-SEATTLE GENETICS-2021SGN03187

PATIENT
  Sex: Male

DRUGS (5)
  1. TUCATINIB [Suspect]
     Active Substance: TUCATINIB
     Indication: BREAST CANCER MALE
     Dosage: 300 MG, BID
  2. LOSARTAN. [Suspect]
     Active Substance: LOSARTAN
     Indication: PRODUCT USED FOR UNKNOWN INDICATION
  3. TUCATINIB [Suspect]
     Active Substance: TUCATINIB
     Dosage: 300 MG, BID
     Dates: start: 20210614
  4. CAPECITABINE. [Suspect]
     Active Substance: CAPECITABINE
     Indication: PRODUCT USED FOR UNKNOWN INDICATION
  5. HERCEPTIN [Suspect]
     Active Substance: TRASTUZUMAB
     Indication: PRODUCT USED FOR UNKNOWN INDICATION
     Dosage: UNK

REACTIONS (12)
  - Pain in extremity [Unknown]
  - Blister [Recovered/Resolved]
  - Onychomadesis [Unknown]
  - Death [Fatal]
  - Erythema [Unknown]
  - Skin exfoliation [Unknown]
  - Skin discolouration [Unknown]
  - Tumour marker decreased [Unknown]
  - Hypotension [Unknown]
  - Decreased appetite [Unknown]
  - Lip blister [Recovered/Resolved]
  - Blood potassium abnormal [Unknown]
